FAERS Safety Report 17656570 (Version 1)
Quarter: 2020Q2

REPORT INFORMATION
  Report Type: Spontaneous
  Country: US (occurrence: US)
  Receive Date: 20200410
  Receipt Date: 20200410
  Transmission Date: 20200713
  Serious: Yes (Hospitalization, Other)
  Sender: FDA-Public Use
  Company Number: None

PATIENT
  Age: 61 Year
  Sex: Male
  Weight: 96.75 kg

DRUGS (5)
  1. LYSINE [Concomitant]
     Active Substance: LYSINE
  2. VITAMIN D3 [Concomitant]
     Active Substance: CHOLECALCIFEROL
  3. FLUOROURACIL CREAM, USP [Suspect]
     Active Substance: FLUOROURACIL
     Indication: ACTINIC KERATOSIS
     Dosage: ?          QUANTITY:1 TUBE;?
     Route: 061
     Dates: start: 20200114, end: 20200123
  4. LORAZEPAM. [Concomitant]
     Active Substance: LORAZEPAM
  5. MULTI^S [Concomitant]

REACTIONS (5)
  - Psychiatric symptom [None]
  - Panic attack [None]
  - Seizure [None]
  - Anxiety [None]
  - Quality of life decreased [None]

NARRATIVE: CASE EVENT DATE: 20200123
